FAERS Safety Report 20180760 (Version 3)
Quarter: 2022Q2

REPORT INFORMATION
  Report Type: Spontaneous
  Country: US (occurrence: US)
  Receive Date: 20211214
  Receipt Date: 20220610
  Transmission Date: 20220721
  Serious: No
  Sender: FDA-Public Use
  Company Number: US-Global Blood Therapeutics Inc-US-GBT-21-04350

PATIENT
  Age: 32 Year
  Sex: Female

DRUGS (3)
  1. OXBRYTA [Suspect]
     Active Substance: VOXELOTOR
     Indication: Sickle cell disease
     Route: 048
     Dates: start: 20200610, end: 20200816
  2. OXBRYTA [Suspect]
     Active Substance: VOXELOTOR
     Route: 048
     Dates: start: 20200817, end: 20211115
  3. OXBRYTA [Suspect]
     Active Substance: VOXELOTOR
     Dosage: ALTERNATING 2 AND 3 TABS
     Route: 048
     Dates: start: 2021

REACTIONS (4)
  - Malaise [Unknown]
  - Therapy cessation [Unknown]
  - Off label use [Unknown]
  - Insurance issue [Unknown]

NARRATIVE: CASE EVENT DATE: 20200819
